FAERS Safety Report 13650606 (Version 1)
Quarter: 2017Q2

REPORT INFORMATION
  Report Type: Spontaneous
  Country: US (occurrence: US)
  Receive Date: 20170614
  Receipt Date: 20170614
  Transmission Date: 20170830
  Serious: Yes (Hospitalization)
  Sender: FDA-Public Use
  Company Number: US-ENDO PHARMACEUTICALS INC-2017-003302

PATIENT
  Sex: Male

DRUGS (1)
  1. EDEX [Suspect]
     Active Substance: ALPROSTADIL
     Indication: PRODUCT USED FOR UNKNOWN INDICATION
     Dosage: 10 ?G, UNKNOWN
     Route: 017
     Dates: start: 20170317

REACTIONS (3)
  - Testicular pain [Unknown]
  - Product use issue [Recovered/Resolved]
  - Abscess limb [Unknown]

NARRATIVE: CASE EVENT DATE: 201703
